FAERS Safety Report 11978242 (Version 2)
Quarter: 2016Q1

REPORT INFORMATION
  Report Type: Report from Study
  Country: US (occurrence: US)
  Receive Date: 20160129
  Receipt Date: 20160203
  Transmission Date: 20160526
  Serious: No
  Sender: FDA-Public Use
  Company Number: US-ABBVIE-15K-163-1411460-00

PATIENT
  Age: 54 Year
  Sex: Female
  Weight: 73.55 kg

DRUGS (10)
  1. HUMIRA [Suspect]
     Active Substance: ADALIMUMAB
     Indication: RHEUMATOID ARTHRITIS
     Route: 065
     Dates: start: 201407, end: 201412
  2. XANAX [Concomitant]
     Active Substance: ALPRAZOLAM
     Indication: PANIC ATTACK
  3. SIMVASTATIN. [Concomitant]
     Active Substance: SIMVASTATIN
     Indication: BLOOD CHOLESTEROL INCREASED
  4. ADVIL [Concomitant]
     Active Substance: IBUPROFEN
     Indication: PAIN
  5. METHOTREXATE [Concomitant]
     Active Substance: METHOTREXATE
     Indication: RHEUMATOID ARTHRITIS
  6. ZOLOFT [Concomitant]
     Active Substance: SERTRALINE HYDROCHLORIDE
     Indication: ANXIETY
  7. NORCO [Concomitant]
     Active Substance: ACETAMINOPHEN\HYDROCODONE BITARTRATE
     Indication: PAIN
  8. LANSOPRAZOLE. [Concomitant]
     Active Substance: LANSOPRAZOLE
     Indication: BARRETT^S OESOPHAGUS
  9. LEVOTHYROXINE. [Suspect]
     Active Substance: LEVOTHYROXINE
     Indication: ASTHENIA
     Route: 065
     Dates: start: 201502
  10. HUMIRA [Suspect]
     Active Substance: ADALIMUMAB
     Route: 065
     Dates: start: 201502

REACTIONS (12)
  - Arthralgia [Not Recovered/Not Resolved]
  - Joint range of motion decreased [Not Recovered/Not Resolved]
  - Rotator cuff syndrome [Not Recovered/Not Resolved]
  - Depressed mood [Not Recovered/Not Resolved]
  - Joint swelling [Not Recovered/Not Resolved]
  - Influenza like illness [Recovered/Resolved]
  - Musculoskeletal pain [Not Recovered/Not Resolved]
  - Pain [Recovered/Resolved]
  - Drug ineffective [Not Recovered/Not Resolved]
  - Asthenia [Not Recovered/Not Resolved]
  - Inflammation [Not Recovered/Not Resolved]
  - Chondropathy [Not Recovered/Not Resolved]

NARRATIVE: CASE EVENT DATE: 201411
